FAERS Safety Report 5211804-X (Version None)
Quarter: 2007Q1

REPORT INFORMATION
  Report Type: 
  Country: None (occurrence: None)
  Receive Date: 20070116
  Receipt Date: 20070116
  Transmission Date: 20070707
  Serious: Yes (Other)
  Sender: FDA-Public Use
  Company Number: None

PATIENT
  Age: 66 Year
  Sex: Female
  Weight: 48.5349 kg

DRUGS (11)
  1. PACLITAXEL [Suspect]
     Indication: NON-SMALL CELL LUNG CANCER
     Dosage: 75 MG PER CYCLE IV
     Route: 042
     Dates: start: 20061208
  2. ONDANSETRON [Concomitant]
  3. PEPCID [Concomitant]
  4. DECADRON [Concomitant]
  5. BENADRYL [Concomitant]
  6. REGLAN [Concomitant]
  7. ATIVAN [Concomitant]
  8. CARBOPLATIN [Concomitant]
  9. ARANESP [Concomitant]
  10. PRILOSEC [Concomitant]
  11. OXYCON [Concomitant]

REACTIONS (4)
  - CHEST DISCOMFORT [None]
  - HYPOAESTHESIA FACIAL [None]
  - INFUSION RELATED REACTION [None]
  - THROAT TIGHTNESS [None]
